FAERS Safety Report 7601555-6 (Version None)
Quarter: 2011Q3

REPORT INFORMATION
  Report Type: 
  Country: None (occurrence: None)
  Receive Date: 20110711
  Receipt Date: 20110629
  Transmission Date: 20111222
  Serious: Yes (Hospitalization, Other)
  Sender: FDA-Public Use
  Company Number: PHEH2009US04183

PATIENT
  Sex: Female

DRUGS (50)
  1. ZOMETA [Suspect]
  2. SYNTHROID [Concomitant]
  3. AMARYL [Concomitant]
  4. SINGULAIR [Concomitant]
     Dosage: 10 MG, QHS
     Route: 048
  5. DOCUSATE [Concomitant]
     Dosage: 100 MG, QD
     Route: 048
  6. HUMULIN R [Concomitant]
     Dosage: 15 U, QHS
     Route: 058
  7. MYCOSTATIN [Concomitant]
     Dosage: UNK
     Route: 061
  8. AREDIA [Suspect]
     Indication: OSTEOPOROSIS
     Dates: start: 20000417, end: 20060915
  9. TYLOX [Concomitant]
  10. HYDROCODONE BITARTRATE [Concomitant]
  11. INSULIN [Concomitant]
  12. LORTAB [Concomitant]
     Dosage: 10 MG, PRN
     Route: 048
  13. REGLAN [Concomitant]
  14. TAMOXIFEN CITRATE [Concomitant]
  15. PHENERGAN [Concomitant]
  16. OXYCONTIN [Concomitant]
  17. MORPHINE [Concomitant]
     Dosage: 25 MG/ML, UNK
     Route: 037
  18. STEROIDS NOS [Concomitant]
  19. BEXTRA [Concomitant]
     Dosage: 10 MG, BID
     Route: 048
  20. CEFAZOLIN [Concomitant]
  21. XANAX [Concomitant]
  22. AREDIA [Suspect]
     Indication: METASTASES TO BONE
  23. NOLVADEX [Concomitant]
  24. LIDOCAINE [Concomitant]
  25. LASIX [Concomitant]
  26. NPH INSULIN [Concomitant]
     Dosage: 15 U, QHS
     Route: 058
  27. NPH INSULIN [Concomitant]
     Dosage: 20 U, QD
     Route: 058
  28. ZYPREXA [Concomitant]
  29. FOSAMAX [Suspect]
     Indication: OSTEITIS DEFORMANS
  30. AMBIEN [Concomitant]
  31. TRICOR [Concomitant]
  32. FLEXERIL [Concomitant]
  33. ZESTRIL [Concomitant]
     Dosage: 10 MG, QD
     Route: 048
  34. FOSAMAX [Suspect]
     Indication: OSTEOPOROSIS
  35. MAVIK [Concomitant]
  36. LOMOTIL [Concomitant]
  37. AROMASIN [Concomitant]
     Indication: BREAST CANCER
  38. CIPRO [Concomitant]
     Dosage: 500 MG, BID
     Route: 048
  39. LOVENOX [Concomitant]
     Dosage: 40 MG, QD
     Route: 058
  40. AREDIA [Suspect]
     Indication: OSTEITIS DEFORMANS
  41. PERCOCET [Concomitant]
  42. ZANTAC [Concomitant]
  43. MECLIZINE [Concomitant]
     Dosage: 25 MG, TID
     Route: 048
  44. ARIMIDEX [Concomitant]
  45. ABILIFY [Concomitant]
  46. FENTANYL [Concomitant]
  47. RESTORIL [Concomitant]
     Dosage: 7.5 MG, DAILY
  48. ZOLOFT [Concomitant]
  49. DEPO-MEDROL [Concomitant]
  50. POTASSIUM CHLORIDE [Concomitant]
     Dosage: UNK

REACTIONS (63)
  - TOOTH LOSS [None]
  - NEPHROLITHIASIS [None]
  - VERTIGO [None]
  - ERYTHEMA [None]
  - LACERATION [None]
  - CHRONIC SINUSITIS [None]
  - PAIN [None]
  - ANXIETY [None]
  - CHOLELITHIASIS [None]
  - ABDOMINAL PAIN [None]
  - BACK PAIN [None]
  - STASIS DERMATITIS [None]
  - FALL [None]
  - SKELETAL INJURY [None]
  - MOOD ALTERED [None]
  - DIABETIC RETINOPATHY [None]
  - OPEN ANGLE GLAUCOMA [None]
  - HAEMATOMA [None]
  - CONFUSIONAL STATE [None]
  - KYPHOSCOLIOSIS [None]
  - DIZZINESS [None]
  - DRUG DEPENDENCE [None]
  - HAEMATURIA [None]
  - ANHEDONIA [None]
  - CELLULITIS [None]
  - MACULAR DEGENERATION [None]
  - INTERVERTEBRAL DISC PROTRUSION [None]
  - DEPRESSION [None]
  - SKIN ULCER [None]
  - LACK OF SPONTANEOUS SPEECH [None]
  - HALLUCINATION [None]
  - EMOTIONAL DISTRESS [None]
  - BONE SWELLING [None]
  - ADRENAL ADENOMA [None]
  - RHINITIS ALLERGIC [None]
  - CONTUSION [None]
  - INSOMNIA [None]
  - DYSTHYMIC DISORDER [None]
  - DYSLIPIDAEMIA [None]
  - OSTEONECROSIS OF JAW [None]
  - JAW DISORDER [None]
  - INJURY [None]
  - NECK PAIN [None]
  - OSTEOARTHRITIS [None]
  - OSTEOMYELITIS [None]
  - MALAISE [None]
  - ASTHENIA [None]
  - CYCLOTHYMIC DISORDER [None]
  - METASTASES TO SPINE [None]
  - DEEP VEIN THROMBOSIS [None]
  - CEREBRAL ATROPHY [None]
  - ADRENAL MASS [None]
  - OEDEMA PERIPHERAL [None]
  - FIBULA FRACTURE [None]
  - FOOT FRACTURE [None]
  - PAIN IN EXTREMITY [None]
  - ARTERIOSCLEROSIS [None]
  - GROIN PAIN [None]
  - CONDITION AGGRAVATED [None]
  - PERIPHERAL VASCULAR DISORDER [None]
  - INFECTION [None]
  - CATARACT [None]
  - ANKLE FRACTURE [None]
